FAERS Safety Report 5626849-5 (Version None)
Quarter: 2008Q1

REPORT INFORMATION
  Report Type: 
  Country: None (occurrence: None)
  Receive Date: 20080212
  Receipt Date: 20080205
  Transmission Date: 20080703
  Serious: Yes (Other)
  Sender: FDA-Public Use
  Company Number: GXKR2008DE01326

PATIENT
  Sex: Female

DRUGS (2)
  1. RAMIPRIL [Suspect]
     Dosage: 5 MG, ORAL
     Route: 048
  2. BISOHEXAL (NGX)(BISOPROLOL) FILM-COATED TABLET, 5MG [Suspect]
     Dosage: 5 MG , ORAL
     Route: 048

REACTIONS (2)
  - DIPLEGIA [None]
  - HYPOAESTHESIA [None]
